FAERS Safety Report 7548197-9 (Version None)
Quarter: 2011Q2

REPORT INFORMATION
  Report Type: 
  Country: None (occurrence: None)
  Receive Date: 20110615
  Receipt Date: 20110606
  Transmission Date: 20111010
  Serious: Yes (Other)
  Sender: FDA-Public Use
  Company Number: US-BAYER-201036474NA

PATIENT
  Age: 29 Year
  Sex: Female
  Weight: 73 kg

DRUGS (12)
  1. YASMIN [Suspect]
  2. PROZAC [Concomitant]
     Dosage: 20 MG, QD
     Route: 048
  3. NEURONTIN [Concomitant]
     Indication: NERVE INJURY
     Dosage: UNK
     Dates: start: 20010101
  4. PERCOCET [Concomitant]
     Indication: ABDOMINAL PAIN UPPER
  5. ALEVE [Concomitant]
     Dosage: UNK
     Dates: start: 20080101
  6. YAZ [Suspect]
     Indication: PREMENSTRUAL SYNDROME
     Dosage: UNK
     Route: 048
     Dates: start: 20080101
  7. PERCOCET [Concomitant]
     Indication: PELVIC PAIN
     Dosage: UNK
     Dates: start: 20080101
  8. TYLENOL-500 [Concomitant]
     Dosage: UNK
     Dates: start: 20080101
  9. PROTONIX [Concomitant]
     Dosage: 40 MG, BID
     Route: 048
  10. SUBOXONE [Concomitant]
     Indication: DEPENDENCE
     Dosage: UNK
     Dates: start: 20090101
  11. YAZ [Suspect]
  12. YASMIN [Suspect]
     Indication: PREMENSTRUAL SYNDROME
     Dosage: UNK
     Dates: start: 20050101

REACTIONS (2)
  - CHOLECYSTECTOMY [None]
  - CHOLECYSTITIS CHRONIC [None]
